FAERS Safety Report 16469076 (Version 1)
Quarter: 2019Q3

REPORT INFORMATION
  Report Type: Spontaneous
  Country: US (occurrence: US)
  Receive Date: 20190621
  Receipt Date: 20190621
  Transmission Date: 20191004
  Serious: Yes (Other)
  Sender: FDA-Public Use
  Company Number: None

PATIENT
  Age: 60 Year
  Sex: Male
  Weight: 90 kg

DRUGS (4)
  1. LISINOPRIL. [Suspect]
     Active Substance: LISINOPRIL
     Indication: HYPERTENSION
     Route: 048
     Dates: start: 20160701, end: 20190523
  2. AMLODIPINE BESYLATE 5MG DAILY [Concomitant]
  3. ATORVASTATIN 40MG DAILY [Concomitant]
  4. CLOPIDOGREL 75MG DAILY [Concomitant]

REACTIONS (2)
  - Drug hypersensitivity [None]
  - Angioedema [None]

NARRATIVE: CASE EVENT DATE: 20190523
